FAERS Safety Report 14525288 (Version 1)
Quarter: 2018Q1

REPORT INFORMATION
  Report Type: Other
  Country: IT (occurrence: IT)
  Receive Date: 20180213
  Receipt Date: 20180213
  Transmission Date: 20180509
  Serious: Yes (Hospitalization)
  Sender: FDA-Public Use
  Company Number: IT-GLENMARK PHARMACEUTICALS-2017GMK031006

PATIENT

DRUGS (2)
  1. LINEZOLID. [Interacting]
     Active Substance: LINEZOLID
     Indication: PRODUCT USED FOR UNKNOWN INDICATION
     Dosage: ()IN TOTAL
     Route: 065
     Dates: start: 20161108, end: 20161108
  2. CITALOPRAM HYDROBROMIDE. [Suspect]
     Active Substance: CITALOPRAM HYDROBROMIDE
     Indication: PRODUCT USED FOR UNKNOWN INDICATION
     Dosage: ()IN TOTAL
     Route: 065
     Dates: start: 20161108, end: 20161108

REACTIONS (4)
  - Drug interaction [Recovered/Resolved]
  - Anxiety [Recovered/Resolved]
  - Headache [Recovered/Resolved]
  - Tremor [Recovered/Resolved]

NARRATIVE: CASE EVENT DATE: 20161108
